FAERS Safety Report 8595779 (Version 4)
Quarter: 2014Q1

REPORT INFORMATION
  Report Type: Spontaneous
  Country: US (occurrence: US)
  Receive Date: 20120605
  Receipt Date: 20140129
  Transmission Date: 20141002
  Serious: No
  Sender: FDA-Public Use
  Company Number: US-ASTRAZENECA-2012SE35645

PATIENT
  Age: 82 Year
  Sex: Female
  Weight: 67.1 kg

DRUGS (11)
  1. NEXIUM [Suspect]
     Indication: GASTROOESOPHAGEAL REFLUX DISEASE
     Dosage: ONLY A DAY
     Route: 048
     Dates: start: 1997
  2. NEXIUM [Suspect]
     Indication: GASTROOESOPHAGEAL REFLUX DISEASE
     Route: 048
     Dates: start: 20130408
  3. ASPIRIN [Concomitant]
  4. METFORMIN [Concomitant]
     Dates: start: 20130531
  5. SPIRONOLACTONE [Concomitant]
     Dates: start: 20130531
  6. LISINOPRIL [Concomitant]
     Dates: start: 20130531
  7. XARELTO [Concomitant]
     Dates: start: 20130606
  8. FUROSEMIDE [Concomitant]
     Dates: start: 20130708
  9. CARVEDIOL [Concomitant]
     Dates: start: 20130711
  10. GLIMEPIRIDE [Concomitant]
     Dates: start: 20130802
  11. LORATADINE [Concomitant]
     Dates: start: 20130806

REACTIONS (5)
  - Osteoporosis [Unknown]
  - Spinal compression fracture [Unknown]
  - Wrist fracture [Unknown]
  - Bone loss [Unknown]
  - Osteopenia [Unknown]
